FAERS Safety Report 17022183 (Version 1)
Quarter: 2019Q4

REPORT INFORMATION
  Report Type: Spontaneous
  Country: US (occurrence: US)
  Receive Date: 20191112
  Receipt Date: 20191112
  Transmission Date: 20200122
  Serious: No
  Sender: FDA-Public Use
  Company Number: None

PATIENT
  Age: 57 Year
  Sex: Male
  Weight: 95 kg

DRUGS (3)
  1. HEPARIN SODIUM. [Suspect]
     Active Substance: HEPARIN SODIUM
  2. HEPARIN SODIUM. [Suspect]
     Active Substance: HEPARIN SODIUM
  3. HEPARIN SODIUM. [Suspect]
     Active Substance: HEPARIN SODIUM

REACTIONS (1)
  - Product use issue [None]
